FAERS Safety Report 10059073 (Version 1)
Quarter: 2014Q2

REPORT INFORMATION
  Report Type: Spontaneous
  Country: ZA (occurrence: ZA)
  Receive Date: 20140404
  Receipt Date: 20140404
  Transmission Date: 20141212
  Serious: Yes (Life-Threatening, Other)
  Sender: FDA-Public Use
  Company Number: ZA-PFIZER INC-2014094988

PATIENT
  Age: 25 Year
  Sex: 0

DRUGS (1)
  1. LYRICA [Suspect]
     Dosage: 75 MG, UNK
     Route: 048

REACTIONS (5)
  - Cardiac arrest [Unknown]
  - Convulsion [Unknown]
  - Drug dependence [Unknown]
  - Panic attack [Unknown]
  - Anxiety [Unknown]
